FAERS Safety Report 6103719-X (Version None)
Quarter: 2009Q1

REPORT INFORMATION
  Report Type: 
  Country: None (occurrence: None)
  Receive Date: 20090305
  Receipt Date: 20090223
  Transmission Date: 20090719
  Serious: Yes (Hospitalization)
  Sender: FDA-Public Use
  Company Number: PHHY2009MX06792

PATIENT
  Sex: Male

DRUGS (1)
  1. TEGRETOL [Suspect]
     Indication: EPILEPSY
     Dosage: 5 TABLET (200 MG) PER DAY
     Route: 048
     Dates: start: 20050101

REACTIONS (3)
  - BRAIN NEOPLASM [None]
  - CONVULSION [None]
  - SURGERY [None]
